FAERS Safety Report 9959171 (Version 1)
Quarter: 2014Q1

REPORT INFORMATION
  Report Type: Spontaneous
  Country: US (occurrence: None)
  Receive Date: 20140228
  Receipt Date: 20140228
  Transmission Date: 20141002
  Serious: Yes (Disabling)
  Sender: FDA-Public Use
  Company Number: None

PATIENT
  Age: 62 Year
  Sex: Female
  Weight: 68.04 kg

DRUGS (1)
  1. MONTELUKAST SODIUM 10 MG DR. REDDY^S [Suspect]
     Indication: ASTHMA
     Route: 048
     Dates: start: 20140208, end: 20140212

REACTIONS (7)
  - Product substitution issue [None]
  - Product quality issue [None]
  - Arthralgia [None]
  - Feeling abnormal [None]
  - Gait disturbance [None]
  - Insomnia [None]
  - Drug ineffective [None]
